FAERS Safety Report 8873020 (Version 1)
Quarter: 2012Q4

REPORT INFORMATION
  Report Type: 
  Country: SY (occurrence: SY)
  Receive Date: 20121030
  Receipt Date: 20121030
  Transmission Date: 20130627
  Serious: Yes (Life-Threatening)
  Sender: FDA-Public Use
  Company Number: SY-ROCHE-1150559

PATIENT
  Age: 58 Year
  Sex: Male

DRUGS (1)
  1. ZELBORAF [Suspect]
     Indication: MALIGNANT MELANOMA
     Route: 048

REACTIONS (1)
  - Disease progression [Not Recovered/Not Resolved]
